FAERS Safety Report 10522408 (Version 1)
Quarter: 2014Q4

REPORT INFORMATION
  Report Type: Spontaneous
  Country: US (occurrence: None)
  Receive Date: 20141014
  Receipt Date: 20141014
  Transmission Date: 20150528
  Serious: Yes (Hospitalization)
  Sender: FDA-Public Use
  Company Number: None

PATIENT
  Age: 84 Year
  Sex: Male
  Weight: 75.9 kg

DRUGS (1)
  1. WARFARIN [Suspect]
     Active Substance: WARFARIN
     Dates: start: 20140107

REACTIONS (7)
  - Haemorrhage [None]
  - Diverticulitis intestinal haemorrhagic [None]
  - Haematuria [None]
  - Treatment noncompliance [None]
  - Haemoglobin decreased [None]
  - International normalised ratio increased [None]
  - Epistaxis [None]

NARRATIVE: CASE EVENT DATE: 20140107
